FAERS Safety Report 6488821-5 (Version None)
Quarter: 2009Q4

REPORT INFORMATION
  Report Type: 
  Country: None (occurrence: None)
  Receive Date: 20091210
  Receipt Date: 20091202
  Transmission Date: 20100525
  Serious: Yes (Hospitalization)
  Sender: FDA-Public Use
  Company Number: JP-PFIZER INC-2009306167

PATIENT
  Sex: Female

DRUGS (2)
  1. XALATAN [Suspect]
     Indication: NORMAL TENSION GLAUCOMA
     Dosage: UNK
     Route: 047
  2. TIMOLOL MALEATE [Concomitant]
     Route: 047

REACTIONS (1)
  - THREATENED LABOUR [None]
